FAERS Safety Report 4288225-X (Version None)
Quarter: 2004Q1

REPORT INFORMATION
  Report Type: 
  Country: None (occurrence: None)
  Receive Date: 20040209
  Receipt Date: 20030909
  Transmission Date: 20041129
  Serious: Yes (Other)
  Sender: FDA-Public Use
  Company Number: US-GLAXOSMITHKLINE-A0425131A

PATIENT
  Age: 54 Year
  Sex: Female

DRUGS (8)
  1. PAXIL [Suspect]
     Indication: POST-TRAUMATIC STRESS DISORDER
     Dosage: 25MG PER DAY
     Route: 048
     Dates: start: 20030830
  2. FLUOXETINE [Suspect]
     Route: 048
  3. TOPAMAX [Concomitant]
  4. ALPRAZOLAM [Concomitant]
  5. REMICADE [Concomitant]
  6. PREDNISONE [Concomitant]
  7. HYDROCODONE [Concomitant]
  8. IMMUNE GLOBULIN INTRAVENOUS (HUMAN) [Concomitant]
     Route: 042

REACTIONS (1)
  - CLONIC CONVULSION [None]
